FAERS Safety Report 7114744-4 (Version None)
Quarter: 2010Q4

REPORT INFORMATION
  Report Type: 
  Country: None (occurrence: None)
  Receive Date: 20101122
  Receipt Date: 20101112
  Transmission Date: 20110411
  Serious: No
  Sender: FDA-Public Use
  Company Number: US-BIOGENIDEC-2010BI027960

PATIENT
  Sex: Female

DRUGS (2)
  1. TYSABRI [Suspect]
     Indication: MULTIPLE SCLEROSIS
     Route: 042
     Dates: start: 20061114, end: 20100127
  2. TYSABRI [Suspect]
     Route: 042
     Dates: start: 20100528

REACTIONS (6)
  - BALANCE DISORDER [None]
  - BODY TEMPERATURE FLUCTUATION [None]
  - FALL [None]
  - FATIGUE [None]
  - HEPATIC ENZYME ABNORMAL [None]
  - LOSS OF CONTROL OF LEGS [None]
